FAERS Safety Report 5475079-9 (Version None)
Quarter: 2007Q4

REPORT INFORMATION
  Report Type: 
  Country: None (occurrence: None)
  Receive Date: 20071002
  Receipt Date: 20070926
  Transmission Date: 20080405
  Serious: Yes (Other)
  Sender: FDA-Public Use
  Company Number: AU-BOEHRINGER INGELHEIM PHARMACEUTICALS, INC.-2007-DE-05754GD

PATIENT
  Age: 35 Year
  Sex: Female

DRUGS (10)
  1. CLONIDINE [Suspect]
     Indication: PRE-ECLAMPSIA
     Route: 048
  2. CLONIDINE [Suspect]
     Route: 048
  3. HYDRALAZINE HCL [Suspect]
     Indication: PRE-ECLAMPSIA
     Route: 048
  4. HYDRALAZINE HCL [Suspect]
     Route: 048
  5. ENALAPRIL MALEATE [Suspect]
     Indication: PRE-ECLAMPSIA
     Route: 048
  6. LABETALOL [Suspect]
     Indication: PRE-ECLAMPSIA
     Route: 048
  7. NIFEDIPINE [Suspect]
     Indication: PRE-ECLAMPSIA
     Route: 048
  8. PRAZOSIN HCL [Suspect]
     Indication: PRE-ECLAMPSIA
     Route: 048
  9. BETAMETHASONE [Concomitant]
     Route: 030
  10. MAGNESIUM SULFATE [Concomitant]
     Dosage: 1 G/H OVER 24 H
     Route: 042

REACTIONS (10)
  - ANAESTHETIC COMPLICATION [None]
  - CAESAREAN SECTION [None]
  - DIPLOPIA [None]
  - DRUG INEFFECTIVE [None]
  - HEADACHE [None]
  - IATROGENIC INJURY [None]
  - INTRACRANIAL HYPOTENSION [None]
  - ISCHAEMIA [None]
  - VITH NERVE DISORDER [None]
  - VITH NERVE PARALYSIS [None]
